FAERS Safety Report 13385910 (Version 1)
Quarter: 2017Q1

REPORT INFORMATION
  Report Type: Spontaneous
  Country: US (occurrence: US)
  Receive Date: 20170330
  Receipt Date: 20170330
  Transmission Date: 20170429
  Serious: No
  Sender: FDA-Public Use
  Company Number: US-AUROBINDO-AUR-APL-2017-12644

PATIENT
  Age: 61 Year
  Sex: Male
  Weight: 70.3 kg

DRUGS (2)
  1. GABAPENTIN CAPSULES 100 MG [Suspect]
     Active Substance: GABAPENTIN
     Indication: PERIPHERAL SENSORY NEUROPATHY
     Dosage: 400 MG IN THE MORNING AND 100 MG IN THE EVENING
     Route: 048
  2. CENTRUM SILVER                     /02363801/ [Concomitant]
     Active Substance: MINERALS\VITAMINS
     Indication: PRODUCT USED FOR UNKNOWN INDICATION
     Dosage: UNK

REACTIONS (7)
  - Renal disorder [Recovered/Resolved]
  - Blood urine present [Recovered/Resolved]
  - Anger [Recovered/Resolved]
  - Mood altered [Recovered/Resolved]
  - Blood disorder [Recovered/Resolved]
  - Irritability [Recovered/Resolved]
  - Pain [Recovered/Resolved]
